FAERS Safety Report 9456247 (Version 1)
Quarter: 2013Q3

REPORT INFORMATION
  Report Type: Spontaneous
  Country: BR (occurrence: BR)
  Receive Date: 20130813
  Receipt Date: 20130813
  Transmission Date: 20140515
  Serious: Yes (Hospitalization)
  Sender: FDA-Public Use
  Company Number: BR-BRISTOL-MYERS SQUIBB COMPANY-19169580

PATIENT
  Age: 37 Year
  Sex: Male
  Weight: 85 kg

DRUGS (7)
  1. REYATAZ CAPS 300 MG [Suspect]
     Indication: HIV INFECTION
     Dates: start: 2006
  2. BIOVIR [Suspect]
     Indication: HIV INFECTION
     Dosage: 1DF:1 TAB
     Dates: start: 2006
  3. RITONAVIR [Suspect]
     Indication: HIV INFECTION
     Dates: start: 2006
  4. CHLORPROMAZINE [Suspect]
     Indication: SCHIZOPHRENIA
     Dosage: TABS
  5. PROMETHAZINE [Suspect]
     Indication: SCHIZOPHRENIA
  6. HALDOL DECANOATE [Suspect]
     Indication: SCHIZOPHRENIA
     Dosage: 1DF: 1 INJ
  7. RIVOTRIL [Concomitant]
     Indication: SLEEP DISORDER
     Dosage: TABS

REACTIONS (4)
  - Jaundice [Recovering/Resolving]
  - Psychotic disorder [Unknown]
  - Hallucination [Unknown]
  - Weight increased [Unknown]
